FAERS Safety Report 21164372 (Version 3)
Quarter: 2023Q1

REPORT INFORMATION
  Report Type: Report from Study
  Country: BR (occurrence: BR)
  Receive Date: 20220803
  Receipt Date: 20230120
  Transmission Date: 20230418
  Serious: Yes (Hospitalization, Other)
  Sender: FDA-Public Use
  Company Number: BR-JNJFOC-20220650586

PATIENT
  Age: 69 Year
  Sex: Female
  Weight: 82 kg

DRUGS (2)
  1. INFLIXIMAB [Suspect]
     Active Substance: INFLIXIMAB
     Indication: Ankylosing spondylitis
     Route: 041
     Dates: start: 20210331, end: 202210
  2. REMICADE [Suspect]
     Active Substance: INFLIXIMAB
     Indication: Ankylosing spondylitis
     Route: 041
     Dates: start: 20210331, end: 20220224

REACTIONS (7)
  - Sinusitis bacterial [Unknown]
  - COVID-19 [Unknown]
  - Urinary tract infection [Unknown]
  - Bacterial rhinitis [Recovered/Resolved]
  - Ankylosing spondylitis [Unknown]
  - Knee arthroplasty [Unknown]
  - Peripheral swelling [Unknown]

NARRATIVE: CASE EVENT DATE: 20211201
